FAERS Safety Report 25070054 (Version 1)
Quarter: 2025Q1

REPORT INFORMATION
  Report Type: Spontaneous
  Country: GB (occurrence: GB)
  Receive Date: 20250312
  Receipt Date: 20250312
  Transmission Date: 20250409
  Serious: Yes (Hospitalization, Other)
  Sender: TORRENT PHARMA INC.
  Company Number: None

PATIENT
  Age: 82 Year
  Weight: 69 kg

DRUGS (2)
  1. APIXABAN [Suspect]
     Active Substance: APIXABAN
     Indication: Atrial septal defect repair
     Dosage: 5 MGMS BD
     Route: 065
     Dates: start: 20231012
  2. EDOXABAN [Suspect]
     Active Substance: EDOXABAN
     Indication: Mitral valve prolapse
     Route: 065
     Dates: start: 20231012

REACTIONS (1)
  - Migraine [Not Recovered/Not Resolved]

NARRATIVE: CASE EVENT DATE: 20231013
